FAERS Safety Report 9882534 (Version 2)
Quarter: 2014Q1

REPORT INFORMATION
  Report Type: Spontaneous
  Country: US (occurrence: US)
  Receive Date: 20140207
  Receipt Date: 20140224
  Transmission Date: 20141002
  Serious: Yes (Other)
  Sender: FDA-Public Use
  Company Number: US-BRISTOL-MYERS SQUIBB COMPANY-20116976

PATIENT
  Age: 61 Year
  Sex: Female

DRUGS (2)
  1. YERVOY [Suspect]
     Indication: METASTATIC MALIGNANT MELANOMA
     Dosage: 1 INFUSION
     Route: 042
     Dates: start: 20131230
  2. BENADRYL [Concomitant]
     Route: 042

REACTIONS (2)
  - Deafness [Unknown]
  - Malignant neoplasm progression [Unknown]
